FAERS Safety Report 15019029 (Version 1)
Quarter: 2018Q2

REPORT INFORMATION
  Report Type: Spontaneous
  Country: US (occurrence: US)
  Receive Date: 20180524
  Receipt Date: 20180524
  Transmission Date: 20180711
  Serious: Yes (Other)
  Sender: FDA-Public Use
  Company Number: None

PATIENT
  Age: 58 Year
  Sex: Female

DRUGS (3)
  1. OCALIVA [Suspect]
     Active Substance: OBETICHOLIC ACID
     Indication: PRIMARY BILIARY CHOLANGITIS
     Route: 048
     Dates: start: 20180330
  2. URSODIOL. [Concomitant]
     Active Substance: URSODIOL
  3. CALCIUM 600 TAB+D [Concomitant]

REACTIONS (2)
  - Nausea [None]
  - Pruritus generalised [None]

NARRATIVE: CASE EVENT DATE: 201805
